FAERS Safety Report 10873182 (Version 1)
Quarter: 2015Q1

REPORT INFORMATION
  Report Type: Spontaneous
  Country: US (occurrence: US)
  Receive Date: 20150227
  Receipt Date: 20150227
  Transmission Date: 20150721
  Serious: Yes (Other)
  Sender: FDA-Public Use
  Company Number: US-ELI_LILLY_AND_COMPANY-US201502008081

PATIENT
  Age: 35 Year
  Sex: Female
  Weight: 63.49 kg

DRUGS (4)
  1. HUMALOG [Suspect]
     Active Substance: INSULIN LISPRO
     Dosage: 13.4 U, QD
     Route: 058
     Dates: start: 20150220, end: 20150220
  2. HUMALOG [Suspect]
     Active Substance: INSULIN LISPRO
     Dosage: 25.375 U, QD
     Route: 058
     Dates: start: 20150218, end: 20150218
  3. HUMALOG [Suspect]
     Active Substance: INSULIN LISPRO
     Indication: PRODUCT USED FOR UNKNOWN INDICATION
     Dosage: UNK
     Route: 058
  4. HUMALOG [Suspect]
     Active Substance: INSULIN LISPRO
     Dosage: 31.15 U, QD
     Route: 058
     Dates: start: 20150219, end: 20150219

REACTIONS (3)
  - Blood glucose increased [Recovering/Resolving]
  - Blindness [Not Recovered/Not Resolved]
  - Blood glucose decreased [Recovering/Resolving]

NARRATIVE: CASE EVENT DATE: 20150219
